FAERS Safety Report 9619412 (Version 2)
Quarter: 2013Q4

REPORT INFORMATION
  Report Type: Spontaneous
  Country: GB (occurrence: GB)
  Receive Date: 20131014
  Receipt Date: 20131014
  Transmission Date: 20140711
  Serious: Yes (Other)
  Sender: FDA-Public Use
  Company Number: PHHY2013GB029401

PATIENT
  Age: 52 Year
  Sex: Female

DRUGS (2)
  1. CITALOPRAM [Suspect]
     Indication: PRODUCT USED FOR UNKNOWN INDICATION
     Dosage: 20 MG, 10 TO 20MG DAILY
     Route: 065
     Dates: end: 20130314
  2. CITALOPRAM [Suspect]
     Dosage: 20 MG, UNK

REACTIONS (4)
  - Personality change [Recovering/Resolving]
  - Feeling abnormal [Recovering/Resolving]
  - Dissociative disorder [Recovering/Resolving]
  - Withdrawal syndrome [Recovering/Resolving]
